FAERS Safety Report 9100748 (Version 1)
Quarter: 2013Q1

REPORT INFORMATION
  Report Type: Spontaneous
  Country: US (occurrence: None)
  Receive Date: 20130220
  Receipt Date: 20130220
  Transmission Date: 20140127
  Serious: Yes (Disabling, Other)
  Sender: FDA-Public Use
  Company Number: None

PATIENT
  Sex: Female
  Weight: 104.33 kg

DRUGS (2)
  1. MEDROXYPROGESTERONE - DEPO GREENSTONE [Suspect]
     Indication: CONTRACEPTION
     Dosage: 150 MG   1 - 3 MONTHS?3-21-12,  6-13-12,  9-5-12
  2. MEDROXYPROGESTERONE - DEPO GREENSTONE [Suspect]
     Indication: MENSTRUAL DISORDER
     Dosage: 150 MG   1 - 3 MONTHS?3-21-12,  6-13-12,  9-5-12

REACTIONS (6)
  - Hypoaesthesia [None]
  - Hypoaesthesia [None]
  - Movement disorder [None]
  - Arthralgia [None]
  - Dry mouth [None]
  - Alopecia [None]
